FAERS Safety Report 6182832-5 (Version None)
Quarter: 2009Q2

REPORT INFORMATION
  Report Type: 
  Country: None (occurrence: None)
  Receive Date: 20090507
  Receipt Date: 20090429
  Transmission Date: 20091009
  Serious: No
  Sender: FDA-Public Use
  Company Number: FR-B.I. PHARMACEUTICALS,INC./RIDGEFIELD-2009-FF-00276FF

PATIENT
  Sex: Male
  Weight: 63 kg

DRUGS (4)
  1. VIRAMUNE [Suspect]
     Indication: HIV INFECTION
     Dosage: 400MG
     Route: 048
     Dates: start: 20081201
  2. DEPAKENE [Concomitant]
     Indication: EPILEPSY
     Dosage: 2000MG
     Route: 048
     Dates: start: 20060101
  3. COMBIVIR [Concomitant]
     Indication: HIV INFECTION
     Dosage: 600/300MG
     Route: 048
     Dates: start: 20080717
  4. NEURONTIN [Concomitant]
     Indication: EPILEPSY
     Dosage: 2400MG
     Route: 048
     Dates: start: 20080501

REACTIONS (1)
  - EPILEPSY [None]
